FAERS Safety Report 6723154-0 (Version None)
Quarter: 2010Q2

REPORT INFORMATION
  Report Type: 
  Country: None (occurrence: None)
  Receive Date: 20100512
  Receipt Date: 20100512
  Transmission Date: 20101027
  Serious: Yes (Disabling)
  Sender: FDA-Public Use
  Company Number: None

PATIENT
  Sex: Male
  Weight: 120.2032 kg

DRUGS (2)
  1. CLONIDINE [Suspect]
     Dosage: 1 PATCH WEEKLY
     Dates: start: 20100101
  2. CLONIDINE [Suspect]
     Dosage: 1 PATCH WEEKLY
     Dates: start: 20100501

REACTIONS (1)
  - PRODUCT ADHESION ISSUE [None]
